FAERS Safety Report 6366331-3 (Version None)
Quarter: 2009Q3

REPORT INFORMATION
  Report Type: 
  Country: None (occurrence: None)
  Receive Date: 20090921
  Receipt Date: 20090914
  Transmission Date: 20100115
  Serious: Yes (Hospitalization)
  Sender: FDA-Public Use
  Company Number: JP-ELI_LILLY_AND_COMPANY-JP200908004215

PATIENT
  Sex: Male
  Weight: 53.4 kg

DRUGS (23)
  1. PEMETREXED [Suspect]
     Indication: NON-SMALL CELL LUNG CANCER
     Dosage: 810 MG, 3/W
     Route: 042
     Dates: start: 20090617, end: 20090731
  2. CISPLATIN [Suspect]
     Indication: NON-SMALL CELL LUNG CANCER
     Dosage: 90 MG, 3/W
     Route: 042
     Dates: start: 20090617, end: 20090617
  3. CISPLATIN [Suspect]
     Dosage: 67.5 MG, 3/W
     Route: 042
     Dates: start: 20090710, end: 20090731
  4. AG-013736(AXITINIB) [Suspect]
     Indication: NON-SMALL CELL LUNG CANCER
     Dosage: 5 MG, 2/D
     Route: 048
     Dates: start: 20090617, end: 20090809
  5. OXYCONTIN [Concomitant]
     Indication: PAIN
     Route: 048
     Dates: start: 20090513, end: 20090807
  6. OPSO [Concomitant]
     Indication: PAIN
     Route: 048
     Dates: start: 20090521
  7. COBALAMIN [Concomitant]
     Indication: PROPHYLAXIS
     Dosage: UNK, UNK
     Route: 030
     Dates: start: 20090529
  8. PANVITAN [Concomitant]
     Indication: PROPHYLAXIS
     Route: 048
     Dates: start: 20090529
  9. CALONAL [Concomitant]
     Indication: PAIN
     Route: 048
     Dates: start: 20090612
  10. GABAPEN [Concomitant]
     Indication: PAIN
     Route: 048
     Dates: start: 20090622
  11. THYRADIN S [Concomitant]
     Indication: BLOOD THYROID STIMULATING HORMONE INCREASED
     Route: 048
     Dates: start: 20090708
  12. MAGLAX [Concomitant]
     Indication: CONSTIPATION
     Route: 048
     Dates: start: 20090716
  13. PRIMPERAN /00041901/ [Concomitant]
     Indication: NAUSEA
     Route: 048
     Dates: start: 20090718
  14. ATARAX [Concomitant]
     Indication: ABDOMINAL PAIN
     Dates: start: 20090101
  15. SENNOSIDE [Concomitant]
     Indication: CONSTIPATION
     Route: 048
     Dates: start: 20090720
  16. MONILAC [Concomitant]
     Indication: CONSTIPATION
     Dosage: UNK, UNK
     Route: 048
     Dates: start: 20090101, end: 20090716
  17. MONILAC [Concomitant]
     Dates: start: 20090723
  18. GAMOFA [Concomitant]
     Indication: ABDOMINAL PAIN
     Route: 048
     Dates: start: 20090731
  19. ZOFRAN [Concomitant]
     Indication: NAUSEA
     Route: 048
     Dates: start: 20090801
  20. DUROTEP [Concomitant]
     Indication: PAIN
     Route: 062
     Dates: start: 20090807
  21. BUSCOPAN [Concomitant]
     Indication: ABDOMINAL PAIN
     Route: 042
     Dates: start: 20090809
  22. BUSCOPAN [Concomitant]
     Route: 048
     Dates: start: 20090809
  23. HACHIAZULE [Concomitant]
     Indication: STOMATITIS
     Route: 050
     Dates: start: 20090809

REACTIONS (2)
  - PNEUMONIA [None]
  - SMALL INTESTINE ULCER [None]
